FAERS Safety Report 9092387 (Version 1)
Quarter: 2013Q1

REPORT INFORMATION
  Report Type: Report from Study
  Country: US (occurrence: US)
  Receive Date: 20130131
  Receipt Date: 20130131
  Transmission Date: 20140127
  Serious: Yes (Hospitalization)
  Sender: FDA-Public Use
  Company Number: US-ABBOTT-12P-163-0992894-00

PATIENT
  Age: 33 None
  Sex: Male
  Weight: 68.1 kg

DRUGS (3)
  1. HUMIRA [Suspect]
     Indication: CROHN^S DISEASE
     Route: 058
     Dates: start: 20101104
  2. HUMIRA [Suspect]
     Dates: start: 201103
  3. ENDOCORT [Concomitant]

REACTIONS (7)
  - Crohn^s disease [Recovered/Resolved]
  - Crohn^s disease [Recovering/Resolving]
  - Drug administration error [Unknown]
  - Small intestinal obstruction [Unknown]
  - Gastritis [Unknown]
  - Incorrect storage of drug [Unknown]
  - Poor quality drug administered [Unknown]
